FAERS Safety Report 24890426 (Version 1)
Quarter: 2025Q1

REPORT INFORMATION
  Report Type: Spontaneous
  Country: IN (occurrence: IN)
  Receive Date: 20250127
  Receipt Date: 20250127
  Transmission Date: 20250408
  Serious: Yes (Other)
  Sender: MAYNE
  Company Number: IN-MAYNE PHARMA-2025MYN000052

PATIENT

DRUGS (1)
  1. SOLTAMOX [Suspect]
     Active Substance: TAMOXIFEN CITRATE
     Indication: Adjuvant therapy
     Dosage: 40 MG, QD (ADJUVANT THERAPY)
     Route: 065

REACTIONS (1)
  - Optic neuritis [Recovering/Resolving]
